FAERS Safety Report 7240254-X (Version None)
Quarter: 2011Q1

REPORT INFORMATION
  Report Type: 
  Country: None (occurrence: None)
  Receive Date: 20110124
  Receipt Date: 20110117
  Transmission Date: 20110831
  Serious: Yes (Other)
  Sender: FDA-Public Use
  Company Number: US-AMGEN-USASP2011003003

PATIENT
  Age: 25 Year
  Sex: Female

DRUGS (2)
  1. ENBREL [Suspect]
     Indication: PSORIATIC ARTHROPATHY
     Dosage: 50 MG, QWK
     Dates: start: 20101223
  2. ENBREL [Suspect]
     Indication: PSORIASIS

REACTIONS (7)
  - DYSPNOEA [None]
  - RESPIRATORY TRACT CONGESTION [None]
  - PYREXIA [None]
  - PAIN [None]
  - HEADACHE [None]
  - HAEMOPTYSIS [None]
  - COUGH [None]
